FAERS Safety Report 8818457 (Version 2)
Quarter: 2012Q4

REPORT INFORMATION
  Report Type: 
  Country: US (occurrence: US)
  Receive Date: 20121001
  Receipt Date: 20121105
  Transmission Date: 20130627
  Serious: Yes (Other)
  Sender: FDA-Public Use
  Company Number: US-ELI_LILLY_AND_COMPANY-US201209007707

PATIENT
  Age: 71 Year
  Sex: Female

DRUGS (4)
  1. EVISTA [Suspect]
     Indication: OSTEOPENIA
     Dosage: UNK, unknown
     Route: 065
     Dates: start: 1997, end: 2007
  2. FOSAMAX [Concomitant]
     Dosage: UNK, unknown
     Route: 065
  3. NASONEX [Concomitant]
  4. SYNTHROID [Concomitant]

REACTIONS (1)
  - Atrial fibrillation [Recovered/Resolved]
